FAERS Safety Report 17366639 (Version 1)
Quarter: 2020Q1

REPORT INFORMATION
  Report Type: Spontaneous
  Country: IT (occurrence: IT)
  Receive Date: 20200204
  Receipt Date: 20200204
  Transmission Date: 20200409
  Serious: Yes (Other)
  Sender: FDA-Public Use
  Company Number: IT-PFIZER INC-2019215401

PATIENT
  Age: 1 Day
  Sex: Male
  Weight: 3 kg

DRUGS (1)
  1. PROSTIN [Suspect]
     Active Substance: ALPROSTADIL
     Indication: HEART DISEASE CONGENITAL
     Dosage: UNK
     Route: 042

REACTIONS (1)
  - Fever neonatal [Not Recovered/Not Resolved]

NARRATIVE: CASE EVENT DATE: 20190426
